FAERS Safety Report 11835302 (Version 1)
Quarter: 2015Q4

REPORT INFORMATION
  Report Type: Spontaneous
  Country: US (occurrence: US)
  Receive Date: 20151215
  Receipt Date: 20151215
  Transmission Date: 20160305
  Serious: No
  Sender: FDA-Public Use
  Company Number: US-009507513-1512USA005119

PATIENT
  Age: 21 Year
  Sex: Female
  Weight: 44.44 kg

DRUGS (1)
  1. NEXPLANON [Suspect]
     Active Substance: ETONOGESTREL
     Indication: CONTRACEPTION
     Dosage: UNK, IMPLANT IN THE RIGHT ARM
     Route: 059
     Dates: start: 201410

REACTIONS (4)
  - Dizziness [Unknown]
  - Device difficult to use [Not Recovered/Not Resolved]
  - Menorrhagia [Unknown]
  - Weight decreased [Unknown]

NARRATIVE: CASE EVENT DATE: 201410
